FAERS Safety Report 5503295-6 (Version None)
Quarter: 2007Q4

REPORT INFORMATION
  Report Type: 
  Country: None (occurrence: None)
  Receive Date: 20071031
  Receipt Date: 20071018
  Transmission Date: 20080405
  Serious: Yes (Death, Hospitalization, Disabling)
  Sender: FDA-Public Use
  Company Number: JP-SHR-JP-2007-035387

PATIENT
  Age: 78 Year
  Sex: Female
  Weight: 35 kg

DRUGS (12)
  1. FLUDARA [Suspect]
     Dosage: 40 MG, 1X/DAY
     Route: 048
     Dates: start: 20070802, end: 20070806
  2. BONALON [Concomitant]
     Indication: OSTEOPOROSIS
     Dosage: 1 TAB(S), 1X/DAY
     Route: 048
     Dates: start: 20060801
  3. MUCOSTA [Concomitant]
     Dosage: 100 MG, 3X/DAY
     Route: 048
     Dates: end: 20070906
  4. SIGMART [Concomitant]
     Dosage: 5 MG, 3X/DAY
     Route: 048
  5. LANSOPRAZOLE [Concomitant]
     Indication: GASTRITIS
     Dosage: 15 MG, 1X/DAY
     Route: 048
     Dates: end: 20070906
  6. ALDACTONE [Concomitant]
     Dosage: 25 MG, 1X/DAY
     Route: 048
     Dates: start: 20060801, end: 20070911
  7. LASIX [Concomitant]
     Dosage: 5 MG, 1X/DAY
     Route: 048
     Dates: start: 20060801, end: 20070911
  8. MAGNESIUM OXIDE [Concomitant]
     Indication: CONSTIPATION
     Dosage: .5 G, 3X/DAY
     Route: 048
     Dates: end: 20070911
  9. ITRIZOLE [Concomitant]
     Indication: NAIL TINEA
     Dosage: 50 MG, 1X/DAY
     Route: 048
     Dates: end: 20070906
  10. AMOBAN [Concomitant]
     Dosage: 7.5 MG, 1X/DAY
     Route: 048
     Dates: start: 20070301
  11. SERENACE [Suspect]
     Dosage: 1 AMP, AS REQ'D
     Route: 042
     Dates: start: 20070810, end: 20070826
  12. TETRAMIDE [Suspect]
     Indication: DEPRESSION
     Dosage: 10 MG, 1X/DAY
     Route: 048
     Dates: start: 20070301

REACTIONS (5)
  - DYSPHAGIA [None]
  - NAUSEA [None]
  - PARKINSONISM [None]
  - PNEUMONIA ASPIRATION [None]
  - VOMITING [None]
